FAERS Safety Report 14967222 (Version 1)
Quarter: 2018Q2

REPORT INFORMATION
  Report Type: Spontaneous
  Country: US (occurrence: US)
  Receive Date: 20180604
  Receipt Date: 20180604
  Transmission Date: 20180711
  Serious: No
  Sender: FDA-Public Use
  Company Number: US-CHEPLA-C20170213

PATIENT
  Age: 56 Year
  Sex: Female

DRUGS (1)
  1. ALL-TRANS-RETINOIC-ACID (ATRA) [Suspect]
     Active Substance: TRETINOIN
     Indication: MYELODYSPLASTIC SYNDROME

REACTIONS (1)
  - Product use in unapproved indication [Recovered/Resolved]
